FAERS Safety Report 8743340 (Version 3)
Quarter: 2012Q4

REPORT INFORMATION
  Report Type: 
  Country: DE (occurrence: DE)
  Receive Date: 20120824
  Receipt Date: 20120918
  Transmission Date: 20130627
  Serious: Yes (Other)
  Sender: FDA-Public Use
  Company Number: DE-UCBSA-063980

PATIENT
  Age: 87 Year
  Sex: Female
  Weight: 80 kg

DRUGS (5)
  1. KEPPRA [Suspect]
     Dosage: STRENGHT: 250 MG
     Dates: start: 20120614, end: 2012
  2. KEPPRA [Suspect]
     Dates: start: 2012
  3. PLAVIX [Concomitant]
  4. CARMEN [Concomitant]
  5. BELOC ZOK [Concomitant]

REACTIONS (2)
  - Blood urine [Recovered/Resolved]
  - Inflammation [Unknown]
